FAERS Safety Report 5750724-9 (Version None)
Quarter: 2008Q2

REPORT INFORMATION
  Report Type: 
  Country: None (occurrence: None)
  Receive Date: 20080528
  Receipt Date: 20080519
  Transmission Date: 20081010
  Serious: Yes (Hospitalization)
  Sender: FDA-Public Use
  Company Number: AU-BRISTOL-MYERS SQUIBB COMPANY-13399423

PATIENT
  Age: 52 Year
  Sex: Female

DRUGS (15)
  1. ABATACEPT [Suspect]
     Indication: SYSTEMIC LUPUS ERYTHEMATOSUS
     Route: 042
     Dates: start: 20051121, end: 20060314
  2. PREDNISOLONE [Concomitant]
     Indication: SYSTEMIC LUPUS ERYTHEMATOSUS
     Route: 048
     Dates: start: 20051108
  3. AZATHIOPRINE [Concomitant]
     Route: 048
     Dates: start: 20041117
  4. CELECOXIB [Concomitant]
     Route: 048
     Dates: start: 19940101
  5. CANDESARTAN CILEXETIL [Concomitant]
     Route: 048
     Dates: start: 20030101
  6. TRAMADOL HCL [Concomitant]
     Route: 048
     Dates: start: 20030401
  7. PREMARIN [Concomitant]
     Route: 048
     Dates: start: 19950101
  8. OMEPRAZOLE [Concomitant]
     Route: 048
     Dates: start: 20020506
  9. TEMAZEPAM [Concomitant]
     Route: 048
     Dates: start: 20051108
  10. CALTRATE [Concomitant]
     Route: 048
     Dates: start: 20051203
  11. OSTELIN [Concomitant]
     Route: 048
     Dates: start: 20051203
  12. FOSAMAX [Concomitant]
     Route: 048
     Dates: start: 20051221
  13. ACETAMINOPHEN [Concomitant]
     Route: 048
     Dates: start: 20051108
  14. ASPIRIN [Concomitant]
     Dates: start: 20060401
  15. AMLODIPINE [Concomitant]
     Dates: start: 20060401

REACTIONS (3)
  - ANXIETY [None]
  - DEHYDRATION [None]
  - DEPRESSION [None]
